FAERS Safety Report 6139493-0 (Version None)
Quarter: 2009Q2

REPORT INFORMATION
  Report Type: 
  Country: None (occurrence: None)
  Receive Date: 20090401
  Receipt Date: 20090320
  Transmission Date: 20091009
  Serious: Yes (Hospitalization, Other)
  Sender: FDA-Public Use
  Company Number: FR-ELI_LILLY_AND_COMPANY-FR200902004600

PATIENT
  Age: 71 Year
  Sex: Female

DRUGS (4)
  1. FORTEO [Suspect]
     Indication: OSTEOPOROSIS
     Dosage: 20 UG, DAILY (1/D)
     Dates: start: 20080701, end: 20090201
  2. FORTEO [Suspect]
     Dosage: 20 UG, DAILY (1/D)
     Dates: start: 20090201
  3. KARDEGIC [Concomitant]
  4. PLAVIX [Concomitant]

REACTIONS (4)
  - FALL [None]
  - GASTRIC ULCER HAEMORRHAGE [None]
  - RIB FRACTURE [None]
  - SYNCOPE [None]
